FAERS Safety Report 17012525 (Version 2)
Quarter: 2019Q4

REPORT INFORMATION
  Report Type: Report from Study
  Country: US (occurrence: RU)
  Receive Date: 20191109
  Receipt Date: 20191113
  Transmission Date: 20200122
  Serious: Yes (Other)
  Sender: FDA-Public Use
  Company Number: US-BRISTOL-MYERS SQUIBB COMPANY-BMS-2019-105947

PATIENT

DRUGS (2)
  1. NIVOLUMAB [Suspect]
     Active Substance: NIVOLUMAB
     Indication: RENAL CELL CARCINOMA
     Route: 042
  2. BEMPEGALDESLEUKIN [Suspect]
     Active Substance: BEMPEGALDESLEUKIN
     Indication: RENAL CELL CARCINOMA
     Route: 042

REACTIONS (1)
  - Tongue discolouration [Unknown]

NARRATIVE: CASE EVENT DATE: 20191026
